FAERS Safety Report 9745620 (Version 1)
Quarter: 2013Q4

REPORT INFORMATION
  Report Type: Spontaneous
  Country: US (occurrence: None)
  Receive Date: 20131205
  Receipt Date: 20131205
  Transmission Date: 20140711
  Serious: Yes (Hospitalization)
  Sender: FDA-Public Use
  Company Number: None

PATIENT
  Age: 58 Year
  Sex: Female

DRUGS (3)
  1. INVOKANA [Suspect]
     Indication: DIABETES MELLITUS
  2. INSULIN GLARGINE (LANTUS) [Concomitant]
  3. METFORMIN [Concomitant]

REACTIONS (1)
  - Renal failure acute [None]
